FAERS Safety Report 8759919 (Version 1)
Quarter: 2012Q4

REPORT INFORMATION
  Report Type: 
  Country: TR (occurrence: TR)
  Receive Date: 20120829
  Receipt Date: 20120829
  Transmission Date: 20130627
  Serious: Yes (Hospitalization)
  Sender: FDA-Public Use
  Company Number: TR-WATSON-2012-14616

PATIENT
  Age: 87 Year
  Sex: Male

DRUGS (1)
  1. CLARITHROMYCIN (UNKNOWN) [Suspect]
     Indication: UPPER RESPIRATORY TRACT INFECTION
     Dosage: 500 mg, daily
     Route: 065

REACTIONS (1)
  - Delirium [Recovered/Resolved]
